FAERS Safety Report 25356543 (Version 2)
Quarter: 2025Q2

REPORT INFORMATION
  Report Type: Report from Study
  Country: US (occurrence: US)
  Receive Date: 20250526
  Receipt Date: 20250527
  Transmission Date: 20250716
  Serious: No
  Sender: ABBVIE
  Company Number: US-ABBVIE-6298616

PATIENT
  Age: 73 Year
  Sex: Female
  Weight: 64.863 kg

DRUGS (4)
  1. HUMIRA [Suspect]
     Active Substance: ADALIMUMAB
     Indication: Crohn^s disease
     Dosage: FORM STRENGTH: 40MG
     Route: 058
     Dates: start: 2010
  2. AMLODIPINE [Concomitant]
     Active Substance: AMLODIPINE BESYLATE
     Indication: Hypertension
  3. POTASSIUM [Concomitant]
     Active Substance: POTASSIUM
     Indication: Mineral supplementation
  4. TRAMADOL [Concomitant]
     Active Substance: TRAMADOL
     Indication: Back disorder

REACTIONS (3)
  - Product temperature excursion issue [Not Recovered/Not Resolved]
  - Device dispensing error [Unknown]
  - Device issue [Unknown]

NARRATIVE: CASE EVENT DATE: 20250510
